FAERS Safety Report 6262745-0 (Version None)
Quarter: 2009Q3

REPORT INFORMATION
  Report Type: 
  Country: None (occurrence: None)
  Receive Date: 20090709
  Receipt Date: 20090630
  Transmission Date: 20100115
  Serious: Yes (Death, Life-Threatening, Hospitalization)
  Sender: FDA-Public Use
  Company Number: AU-GILEAD-2007-0012589

PATIENT
  Sex: Female
  Weight: 76 kg

DRUGS (16)
  1. AMBRISENTAN [Suspect]
     Indication: PULMONARY HYPERTENSION
     Route: 048
     Dates: start: 20060831, end: 20070629
  2. AMBRISENTAN [Suspect]
     Route: 048
     Dates: start: 20060828, end: 20060831
  3. AMBRISENTAN [Suspect]
     Route: 048
     Dates: start: 20030811, end: 20060822
  4. REVATIO [Concomitant]
     Indication: PULMONARY ARTERIAL HYPERTENSION
     Route: 048
     Dates: start: 20061113
  5. PRILOSEC [Concomitant]
     Indication: PULMONARY ARTERIAL HYPERTENSION
     Route: 048
     Dates: start: 20070301
  6. WARFARIN SODIUM [Concomitant]
     Indication: PULMONARY ARTERIAL HYPERTENSION
     Route: 048
     Dates: start: 20050907
  7. NORVASC [Concomitant]
     Indication: PULMONARY ARTERIAL HYPERTENSION
     Route: 048
     Dates: start: 20030602
  8. LASIX [Concomitant]
     Indication: PULMONARY ARTERIAL HYPERTENSION
     Route: 048
  9. PREDNISONE [Concomitant]
     Indication: SYSTEMIC LUPUS ERYTHEMATOSUS
     Route: 048
     Dates: start: 19940101
  10. AUGMENTIN '125' [Concomitant]
     Indication: UPPER RESPIRATORY TRACT INFECTION
     Route: 048
     Dates: start: 20070320
  11. LYRICA [Concomitant]
     Indication: BACK PAIN
     Route: 048
     Dates: start: 20070301
  12. LYRICA [Concomitant]
     Indication: ARTHRALGIA
  13. OXYCODONE [Concomitant]
     Indication: BACK PAIN
     Route: 048
     Dates: start: 20061122
  14. OXYCODONE [Concomitant]
     Indication: ARTHRALGIA
  15. CELEBREX [Concomitant]
     Indication: OSTEOARTHRITIS
     Route: 048
     Dates: start: 20050309
  16. TEMAZEPAM [Concomitant]
     Indication: INSOMNIA
     Route: 048
     Dates: start: 20070416

REACTIONS (7)
  - ALANINE AMINOTRANSFERASE INCREASED [None]
  - ANURIA [None]
  - ASPARTATE AMINOTRANSFERASE INCREASED [None]
  - BRAIN HYPOXIA [None]
  - CARDIAC ARREST [None]
  - COAGULOPATHY [None]
  - PELVIC HAEMATOMA [None]
